FAERS Safety Report 7376718-8 (Version None)
Quarter: 2011Q1

REPORT INFORMATION
  Report Type: 
  Country: None (occurrence: None)
  Receive Date: 20110325
  Receipt Date: 20110317
  Transmission Date: 20110831
  Serious: Yes (Other)
  Sender: FDA-Public Use
  Company Number: US-ASTRAZENECA-2011SE15311

PATIENT
  Age: 78 Year
  Sex: Female

DRUGS (11)
  1. NEXIUM [Suspect]
     Indication: GASTROOESOPHAGEAL REFLUX DISEASE
     Route: 048
     Dates: start: 20070101
  2. DUONEBS [Concomitant]
  3. ZYRTEC [Concomitant]
  4. LOVAZA [Concomitant]
  5. ADVAIR DISKUS 100/50 [Concomitant]
  6. DIOVAN [Concomitant]
  7. CRESTOR [Concomitant]
  8. Q10 CO [Concomitant]
  9. LECITHIN [Concomitant]
  10. FISH OIL [Concomitant]
  11. VITAMIN B-12 [Concomitant]

REACTIONS (1)
  - BLOOD IRON DECREASED [None]
